FAERS Safety Report 23935966 (Version 1)
Quarter: 2024Q2

REPORT INFORMATION
  Report Type: Report from Study
  Country: CL (occurrence: CL)
  Receive Date: 20240604
  Receipt Date: 20240604
  Transmission Date: 20240715
  Serious: Yes (Other)
  Sender: FDA-Public Use
  Company Number: CL-JNJFOC-20240586103

PATIENT
  Age: 59 Year
  Sex: Female

DRUGS (1)
  1. SIMPONI [Suspect]
     Active Substance: GOLIMUMAB
     Indication: Rheumatoid arthritis
     Route: 058
     Dates: start: 20190916

REACTIONS (6)
  - Rheumatoid arthritis [Unknown]
  - Dysphonia [Unknown]
  - Fibromyalgia [Unknown]
  - Laryngitis [Unknown]
  - Pharyngitis [Unknown]
  - Immune system disorder [Unknown]
